FAERS Safety Report 7290258-6 (Version None)
Quarter: 2011Q1

REPORT INFORMATION
  Report Type: 
  Country: None (occurrence: None)
  Receive Date: 20110214
  Receipt Date: 20110204
  Transmission Date: 20110831
  Serious: Yes (Hospitalization)
  Sender: FDA-Public Use
  Company Number: FR-JNJFOC-20110201664

PATIENT
  Age: 90 Year
  Sex: Male

DRUGS (11)
  1. TAVANIC [Suspect]
     Indication: LUNG DISORDER
     Route: 042
  2. PERINDOPRIL ERBUMINE [Concomitant]
     Route: 065
  3. FORLAX [Concomitant]
     Route: 065
  4. ROCEPHIN [Suspect]
     Indication: LUNG DISORDER
     Route: 042
  5. OMEPRAZOLE [Concomitant]
     Route: 065
  6. ROCEPHIN [Suspect]
     Indication: SEPSIS
     Route: 042
  7. TAVANIC [Suspect]
     Indication: SEPSIS
     Route: 042
  8. ASPIRIN [Concomitant]
     Route: 065
  9. TIAPRIDAL [Concomitant]
     Route: 065
  10. SULFAMETHOXAZOLE AND TRIMETHOPRIM [Suspect]
     Indication: PRODUCT USED FOR UNKNOWN INDICATION
     Route: 065
  11. CITALOPRAM HYDROBROMIDE [Concomitant]
     Route: 065

REACTIONS (1)
  - TOXIC SKIN ERUPTION [None]
